FAERS Safety Report 5598140-7 (Version None)
Quarter: 2008Q1

REPORT INFORMATION
  Report Type: 
  Country: None (occurrence: None)
  Receive Date: 20080117
  Receipt Date: 20080117
  Transmission Date: 20080703
  Serious: No
  Sender: FDA-Public Use
  Company Number: None

PATIENT
  Age: 58 Year
  Sex: Male

DRUGS (2)
  1. FUROSEMIDE [Suspect]
     Indication: CARDIAC FAILURE CONGESTIVE
     Dosage: 500 MG/50 ML 2 ML/HOUR IV
     Route: 042
     Dates: start: 20071003, end: 20071006
  2. FUROSEMIDE [Suspect]
     Indication: FLUID OVERLOAD
     Dosage: 500 MG/50 ML 2 ML/HOUR IV
     Route: 042
     Dates: start: 20071003, end: 20071006

REACTIONS (1)
  - PANCREATITIS ACUTE [None]
